FAERS Safety Report 18078136 (Version 1)
Quarter: 2020Q3

REPORT INFORMATION
  Report Type: Spontaneous
  Country: US (occurrence: US)
  Receive Date: 20200727
  Receipt Date: 20200727
  Transmission Date: 20201103
  Serious: No
  Sender: FDA-Public Use
  Company Number: US-SEATTLE GENETICS-2020SGN02521

PATIENT
  Sex: Female

DRUGS (3)
  1. TUKYSA [Suspect]
     Active Substance: TUCATINIB
     Indication: BREAST CANCER FEMALE
     Dosage: UNK, BID
  2. HERCEPTIN [Concomitant]
     Active Substance: TRASTUZUMAB
     Indication: BREAST CANCER FEMALE
  3. HALAVEN [Suspect]
     Active Substance: ERIBULIN MESYLATE
     Dosage: UNK
     Dates: start: 20200630, end: 20200630

REACTIONS (7)
  - Hepatic enzyme increased [Unknown]
  - Hypertension [Unknown]
  - Pruritus [Unknown]
  - Fatigue [Unknown]
  - Gastrointestinal disorder [Unknown]
  - Erythema [Unknown]
  - Alopecia [Unknown]
